FAERS Safety Report 8410409-7 (Version None)
Quarter: 2012Q2

REPORT INFORMATION
  Report Type: 
  Country: None (occurrence: None)
  Receive Date: 20120529
  Receipt Date: 20060228
  Transmission Date: 20120825
  Serious: Yes (Hospitalization)
  Sender: FDA-Public Use
  Company Number: 15691-USA-06-0626

PATIENT
  Age: 80 Year
  Sex: Female
  Weight: 69.2 kg

DRUGS (14)
  1. TOLVAPTAN (TOLVAPTAN(V4.1)) 30MG [Suspect]
     Indication: CARDIAC FAILURE CONGESTIVE
     Dosage: 30 MG, QD, ORAL
     Route: 048
     Dates: start: 20051019
  2. HYDRALAZINE HCL [Concomitant]
  3. CIPROFLOXACIN [Concomitant]
  4. ZOCOR [Concomitant]
  5. AMIODARONE HCL [Concomitant]
  6. PAXIL [Concomitant]
  7. NEXIUM [Concomitant]
  8. CENTRUM SILVER (ASCORBIC ACID, TOCOPHERYL ACETATE, RETINOL, ZINC, CALC [Concomitant]
  9. IRON (IRON) [Concomitant]
  10. SPIRONOLACTONE [Concomitant]
  11. COREG [Concomitant]
  12. COUMADIN [Concomitant]
  13. TORSEMIDE [Concomitant]
  14. ASPIRIN [Concomitant]

REACTIONS (6)
  - CONDITION AGGRAVATED [None]
  - BLOOD CREATININE INCREASED [None]
  - PULMONARY OEDEMA [None]
  - CARDIAC FAILURE CONGESTIVE [None]
  - CARDIOMEGALY [None]
  - BLOOD UREA INCREASED [None]
